FAERS Safety Report 7355863-7 (Version None)
Quarter: 2011Q1

REPORT INFORMATION
  Report Type: 
  Country: None (occurrence: None)
  Receive Date: 20110316
  Receipt Date: 20110308
  Transmission Date: 20110831
  Serious: Yes (Hospitalization)
  Sender: FDA-Public Use
  Company Number: DE-BRACCO-000816

PATIENT
  Age: 77 Year
  Sex: Female

DRUGS (2)
  1. MULTIHANCE [Suspect]
     Indication: NUCLEAR MAGNETIC RESONANCE IMAGING
     Dates: start: 20110101, end: 20110101
  2. MULTIHANCE [Suspect]
     Indication: HEPATIC NEOPLASM MALIGNANT
     Dates: start: 20110101, end: 20110101

REACTIONS (1)
  - HAEMORRHAGIC STROKE [None]
